FAERS Safety Report 7634964-X (Version None)
Quarter: 2011Q3

REPORT INFORMATION
  Report Type: 
  Country: None (occurrence: None)
  Receive Date: 20110726
  Receipt Date: 20110719
  Transmission Date: 20111222
  Serious: Yes (Other)
  Sender: FDA-Public Use
  Company Number: US-BAYER-201035544NA

PATIENT
  Sex: Female

DRUGS (3)
  1. YAZ [Suspect]
     Dates: start: 20050101
  2. DROSPIRENONE AND ETHINYL ESTRADIOL [Suspect]
     Dosage: UNK
     Dates: start: 20050101
  3. YASMIN [Suspect]
     Dosage: UNK
     Dates: start: 20050101

REACTIONS (7)
  - PALPITATIONS [None]
  - INJURY [None]
  - ARRHYTHMIA [None]
  - PAIN [None]
  - ANHEDONIA [None]
  - ANXIETY [None]
  - EMOTIONAL DISTRESS [None]
